FAERS Safety Report 11347114 (Version 1)
Quarter: 2015Q3

REPORT INFORMATION
  Report Type: Spontaneous
  Country: US (occurrence: US)
  Receive Date: 20150803
  Receipt Date: 20150803
  Transmission Date: 20151125
  Serious: Yes (Hospitalization, Other)
  Sender: FDA-Public Use
  Company Number: US-ELI_LILLY_AND_COMPANY-US201104001747

PATIENT
  Sex: Male

DRUGS (2)
  1. ZYPREXA [Suspect]
     Active Substance: OLANZAPINE
     Dosage: 15 MG, UNK
  2. ZYPREXA [Suspect]
     Active Substance: OLANZAPINE
     Dosage: UNK
     Dates: start: 201103

REACTIONS (2)
  - Heart rate increased [Unknown]
  - Intentional overdose [Unknown]

NARRATIVE: CASE EVENT DATE: 201103
